FAERS Safety Report 20785473 (Version 2)
Quarter: 2022Q3

REPORT INFORMATION
  Report Type: Spontaneous
  Country: CA (occurrence: CA)
  Receive Date: 20220504
  Receipt Date: 20220825
  Transmission Date: 20221027
  Serious: Yes (Other)
  Sender: FDA-Public Use
  Company Number: CA-BRISTOL-MYERS SQUIBB COMPANY-2022-032902

PATIENT
  Sex: Female

DRUGS (73)
  1. ORENCIA [Suspect]
     Active Substance: ABATACEPT
     Indication: Rheumatoid arthritis
     Route: 065
  2. ADALIMUMAB [Concomitant]
     Active Substance: ADALIMUMAB
     Indication: Product used for unknown indication
     Route: 058
  3. ADALIMUMAB [Concomitant]
     Active Substance: ADALIMUMAB
     Indication: Rheumatoid arthritis
     Route: 065
  4. ASACOL [Concomitant]
     Active Substance: MESALAMINE
     Indication: Crohn^s disease
     Route: 065
  5. AZATHIOPRINE [Concomitant]
     Active Substance: AZATHIOPRINE
     Indication: Product used for unknown indication
     Route: 065
  6. CETIRIZINE HYDROCHLORIDE [Concomitant]
     Active Substance: CETIRIZINE HYDROCHLORIDE
     Indication: Rheumatoid arthritis
     Route: 065
  7. CIMZIA [Concomitant]
     Active Substance: CERTOLIZUMAB PEGOL
     Indication: Rheumatoid arthritis
     Route: 058
  8. CIMZIA [Concomitant]
     Active Substance: CERTOLIZUMAB PEGOL
     Indication: Psoriasis
     Route: 065
  9. CORTISONE ACETATE [Concomitant]
     Active Substance: CORTISONE ACETATE
     Indication: Rheumatoid arthritis
     Route: 065
  10. DESOXIMETASONE [Concomitant]
     Active Substance: DESOXIMETASONE
     Indication: Rheumatoid arthritis
     Dosage: TOPICAL
     Route: 061
  11. DICLOFENAC SODIUM [Concomitant]
     Active Substance: DICLOFENAC SODIUM
     Indication: Product used for unknown indication
     Dosage: SOLUTION
     Route: 065
  12. DICLOFENAC SODIUM [Concomitant]
     Active Substance: DICLOFENAC SODIUM
     Route: 065
  13. ETANERCEPT [Concomitant]
     Active Substance: ETANERCEPT
     Indication: Rheumatoid arthritis
     Route: 058
  14. ETANERCEPT [Concomitant]
     Active Substance: ETANERCEPT
     Route: 058
  15. FOLIC ACID [Concomitant]
     Active Substance: FOLIC ACID
     Indication: Rheumatoid arthritis
     Route: 065
  16. FOLIC ACID [Concomitant]
     Active Substance: FOLIC ACID
     Route: 065
  17. GOLIMUMAB [Concomitant]
     Active Substance: GOLIMUMAB
     Indication: Product used for unknown indication
     Route: 058
  18. GOLIMUMAB [Concomitant]
     Active Substance: GOLIMUMAB
     Route: 058
  19. HYDROXYCHLOROQUINE SULFATE [Concomitant]
     Active Substance: HYDROXYCHLOROQUINE SULFATE
     Indication: Rheumatoid arthritis
     Route: 065
  20. HYDROXYCHLOROQUINE SULFATE [Concomitant]
     Active Substance: HYDROXYCHLOROQUINE SULFATE
     Route: 065
  21. INFLIXIMAB [Concomitant]
     Active Substance: INFLIXIMAB
     Indication: Crohn^s disease
     Route: 065
  22. KEVZARA [Concomitant]
     Active Substance: SARILUMAB
     Indication: Rheumatoid arthritis
     Route: 065
  23. KEVZARA [Concomitant]
     Active Substance: SARILUMAB
     Route: 065
  24. LEFLUNOMIDE [Concomitant]
     Active Substance: LEFLUNOMIDE
     Indication: Rheumatoid arthritis
     Route: 048
  25. LEFLUNOMIDE [Concomitant]
     Active Substance: LEFLUNOMIDE
     Route: 065
  26. LEFLUNOMIDE [Concomitant]
     Active Substance: LEFLUNOMIDE
     Route: 065
  27. LEFLUNOMIDE [Concomitant]
     Active Substance: LEFLUNOMIDE
     Route: 048
  28. LEFLUNOMIDE [Concomitant]
     Active Substance: LEFLUNOMIDE
     Route: 065
  29. METHOTREXATE [Concomitant]
     Active Substance: METHOTREXATE
     Indication: Product used for unknown indication
     Route: 058
  30. METHOTREXATE [Concomitant]
     Active Substance: METHOTREXATE
     Route: 048
  31. METHOTREXATE [Concomitant]
     Active Substance: METHOTREXATE
     Route: 058
  32. METHOTREXATE [Concomitant]
     Active Substance: METHOTREXATE
     Route: 048
  33. METHOTREXATE [Concomitant]
     Active Substance: METHOTREXATE
     Route: 065
  34. METHOTREXATE [Concomitant]
     Active Substance: METHOTREXATE
     Route: 048
  35. METHOTREXATE [Concomitant]
     Active Substance: METHOTREXATE
     Route: 058
  36. MINOCYCLINE HYDROCHLORIDE [Concomitant]
     Active Substance: MINOCYCLINE HYDROCHLORIDE
     Indication: Product used for unknown indication
  37. MORPHINE SULFATE [Concomitant]
     Active Substance: MORPHINE SULFATE
     Indication: Rheumatoid arthritis
     Route: 065
  38. MORPHINE SULFATE [Concomitant]
     Active Substance: MORPHINE SULFATE
     Route: 065
  39. OTEZLA [Concomitant]
     Active Substance: APREMILAST
     Indication: Product used for unknown indication
  40. OTEZLA [Concomitant]
     Active Substance: APREMILAST
     Route: 065
  41. PHTHALYLSULFATHIAZOLE [Concomitant]
     Active Substance: PHTHALYLSULFATHIAZOLE
     Indication: Product used for unknown indication
     Route: 065
  42. PREDNISONE [Concomitant]
     Active Substance: PREDNISONE
     Indication: Rheumatoid arthritis
     Route: 065
  43. PREDNISONE [Concomitant]
     Active Substance: PREDNISONE
     Indication: Arthralgia
     Route: 065
  44. PREDNISONE [Concomitant]
     Active Substance: PREDNISONE
     Route: 065
  45. PSEUDOEPHEDRINE HYDROCHLORIDE [Concomitant]
     Active Substance: PSEUDOEPHEDRINE HYDROCHLORIDE
     Indication: Rheumatoid arthritis
     Route: 065
  46. REMICADE [Concomitant]
     Active Substance: INFLIXIMAB
     Indication: Rheumatoid arthritis
     Route: 042
  47. REMICADE [Concomitant]
     Active Substance: INFLIXIMAB
     Route: 065
  48. REMICADE [Concomitant]
     Active Substance: INFLIXIMAB
     Dosage: POWDER FOR?SOLUTION?INTRAVENOUS
     Route: 042
  49. REMICADE [Concomitant]
     Active Substance: INFLIXIMAB
     Route: 042
  50. REMICADE [Concomitant]
     Active Substance: INFLIXIMAB
     Route: 042
  51. REMICADE [Concomitant]
     Active Substance: INFLIXIMAB
     Route: 065
  52. REMICADE [Concomitant]
     Active Substance: INFLIXIMAB
     Route: 042
  53. RITUXIMAB [Concomitant]
     Active Substance: RITUXIMAB
     Indication: Rheumatoid arthritis
     Route: 042
  54. SECUKINUMAB [Concomitant]
     Active Substance: SECUKINUMAB
     Indication: Product used for unknown indication
     Route: 065
  55. SIRUKUMAB [Concomitant]
     Active Substance: SIRUKUMAB
     Indication: Product used for unknown indication
     Route: 065
  56. SIRUKUMAB [Concomitant]
     Active Substance: SIRUKUMAB
     Route: 065
  57. SULFASALAZINE [Concomitant]
     Active Substance: SULFASALAZINE
     Indication: Rheumatoid arthritis
     Route: 065
  58. SULFASALAZINE [Concomitant]
     Active Substance: SULFASALAZINE
     Route: 065
  59. TOCILIZUMAB [Concomitant]
     Active Substance: TOCILIZUMAB
     Indication: Rheumatoid arthritis
     Route: 042
  60. TOCILIZUMAB [Concomitant]
     Active Substance: TOCILIZUMAB
     Route: 065
  61. TOCILIZUMAB [Concomitant]
     Active Substance: TOCILIZUMAB
  62. USTEKINUMAB [Concomitant]
     Active Substance: USTEKINUMAB
     Indication: Product used for unknown indication
     Route: 048
  63. USTEKINUMAB [Concomitant]
     Active Substance: USTEKINUMAB
     Route: 058
  64. USTEKINUMAB [Concomitant]
     Active Substance: USTEKINUMAB
     Route: 058
  65. XELJANZ [Concomitant]
     Active Substance: TOFACITINIB CITRATE
     Indication: Product used for unknown indication
     Route: 065
  66. XELJANZ [Concomitant]
     Active Substance: TOFACITINIB CITRATE
     Route: 065
  67. XELJANZ [Concomitant]
     Active Substance: TOFACITINIB CITRATE
     Route: 065
  68. XELJANZ [Concomitant]
     Active Substance: TOFACITINIB CITRATE
     Route: 065
  69. BUPROPION HYDROCHLORIDE [Concomitant]
     Active Substance: BUPROPION HYDROCHLORIDE
     Indication: Product used for unknown indication
     Route: 065
  70. DILAUDID [Concomitant]
     Active Substance: HYDROMORPHONE HYDROCHLORIDE
     Indication: Product used for unknown indication
     Route: 065
  71. HYDROMORPHONE HYDROCHLORIDE [Concomitant]
     Active Substance: HYDROMORPHONE HYDROCHLORIDE
     Indication: Product used for unknown indication
     Route: 065
  72. SULFASALAZINE [Concomitant]
     Active Substance: SULFASALAZINE
     Indication: Product used for unknown indication
     Route: 065
  73. WELLBUTRIN [Concomitant]
     Active Substance: BUPROPION HYDROCHLORIDE
     Indication: Product used for unknown indication
     Route: 065

REACTIONS (60)
  - Crohn^s disease [Not Recovered/Not Resolved]
  - Hepatic cirrhosis [Not Recovered/Not Resolved]
  - Lupus-like syndrome [Not Recovered/Not Resolved]
  - Pemphigus [Not Recovered/Not Resolved]
  - Pericarditis [Not Recovered/Not Resolved]
  - Pneumonia [Not Recovered/Not Resolved]
  - Retinitis [Not Recovered/Not Resolved]
  - Systemic lupus erythematosus [Not Recovered/Not Resolved]
  - Abdominal discomfort [Not Recovered/Not Resolved]
  - Adverse drug reaction [Not Recovered/Not Resolved]
  - Alopecia [Not Recovered/Not Resolved]
  - Anti-cyclic citrullinated peptide antibody positive [Not Recovered/Not Resolved]
  - Arthralgia [Not Recovered/Not Resolved]
  - Arthritis [Not Recovered/Not Resolved]
  - Bone erosion [Not Recovered/Not Resolved]
  - C-reactive protein increased [Not Recovered/Not Resolved]
  - Condition aggravated [Not Recovered/Not Resolved]
  - Decreased appetite [Not Recovered/Not Resolved]
  - Discomfort [Not Recovered/Not Resolved]
  - Dizziness [Not Recovered/Not Resolved]
  - Drug hypersensitivity [Not Recovered/Not Resolved]
  - Drug ineffective [Not Recovered/Not Resolved]
  - Drug intolerance [Not Recovered/Not Resolved]
  - Ear infection [Not Recovered/Not Resolved]
  - Exostosis [Not Recovered/Not Resolved]
  - Fatigue [Not Recovered/Not Resolved]
  - Foot deformity [Not Recovered/Not Resolved]
  - General physical health deterioration [Not Recovered/Not Resolved]
  - Glossodynia [Not Recovered/Not Resolved]
  - Hand deformity [Not Recovered/Not Resolved]
  - Headache [Not Recovered/Not Resolved]
  - Hepatic enzyme increased [Not Recovered/Not Resolved]
  - Hypersensitivity [Not Recovered/Not Resolved]
  - Hypoaesthesia [Not Recovered/Not Resolved]
  - Infection [Not Recovered/Not Resolved]
  - Infusion related reaction [Not Recovered/Not Resolved]
  - Joint dislocation [Not Recovered/Not Resolved]
  - Joint stiffness [Not Recovered/Not Resolved]
  - Joint swelling [Not Recovered/Not Resolved]
  - Laryngitis [Not Recovered/Not Resolved]
  - Malaise [Not Recovered/Not Resolved]
  - Mobility decreased [Not Recovered/Not Resolved]
  - Musculoskeletal stiffness [Not Recovered/Not Resolved]
  - Nausea [Not Recovered/Not Resolved]
  - Oedema peripheral [Not Recovered/Not Resolved]
  - Osteoarthritis [Not Recovered/Not Resolved]
  - Osteoporosis [Not Recovered/Not Resolved]
  - Pain [Not Recovered/Not Resolved]
  - Pain in extremity [Not Recovered/Not Resolved]
  - Product use issue [Not Recovered/Not Resolved]
  - Rash [Not Recovered/Not Resolved]
  - Red blood cell sedimentation rate increased [Not Recovered/Not Resolved]
  - Rheumatoid arthritis [Not Recovered/Not Resolved]
  - Rheumatoid factor positive [Not Recovered/Not Resolved]
  - Synovitis [Not Recovered/Not Resolved]
  - Therapeutic product effect decreased [Not Recovered/Not Resolved]
  - Therapeutic product effect incomplete [Not Recovered/Not Resolved]
  - Treatment failure [Not Recovered/Not Resolved]
  - Visual impairment [Not Recovered/Not Resolved]
  - Wound [Not Recovered/Not Resolved]
